FAERS Safety Report 5286710-5 (Version None)
Quarter: 2007Q2

REPORT INFORMATION
  Report Type: 
  Country: None (occurrence: None)
  Receive Date: 20070404
  Receipt Date: 20070403
  Transmission Date: 20071010
  Serious: Yes (Death, Life-Threatening, Hospitalization)
  Sender: FDA-Public Use
  Company Number: HQWYE192217OCT06

PATIENT
  Sex: Male

DRUGS (6)
  1. PROPRANOLOL HYDROCHLORIDE [Suspect]
     Indication: HYPERTENSION
     Route: 048
     Dates: start: 20010101, end: 20061005
  2. ASCORBIC ACID [Concomitant]
     Route: 048
  3. VITAMIN B COMPLEX CAP [Concomitant]
     Route: 048
  4. LANSOPRAZOLE [Suspect]
     Indication: BARRETT'S OESOPHAGUS
     Route: 048
     Dates: start: 20010101, end: 20061005
  5. CETIRIZINE HCL [Concomitant]
     Indication: ANTIALLERGIC THERAPY
     Route: 048
     Dates: end: 20061005
  6. THIAMINE [Concomitant]
     Route: 048

REACTIONS (2)
  - THROMBOCYTOPENIA [None]
  - THROMBOTIC STROKE [None]
